FAERS Safety Report 13369160 (Version 1)
Quarter: 2017Q1

REPORT INFORMATION
  Report Type: Spontaneous
  Country: US (occurrence: US)
  Receive Date: 20170324
  Receipt Date: 20170324
  Transmission Date: 20170429
  Serious: Yes (Hospitalization)
  Sender: FDA-Public Use
  Company Number: None

PATIENT
  Age: 82 Year
  Sex: Male
  Weight: 84.6 kg

DRUGS (1)
  1. WARFARIN [Suspect]
     Active Substance: WARFARIN
     Indication: ATRIAL FIBRILLATION
     Route: 048
     Dates: start: 20160321

REACTIONS (11)
  - Vomiting [None]
  - Haematemesis [None]
  - Refusal of treatment by patient [None]
  - Diarrhoea [None]
  - Nausea [None]
  - Blood creatinine increased [None]
  - Haematochezia [None]
  - Haemoglobin increased [None]
  - International normalised ratio increased [None]
  - Drug dose omission [None]
  - Abdominal pain [None]

NARRATIVE: CASE EVENT DATE: 20170203
